FAERS Safety Report 10171087 (Version 2)
Quarter: 2014Q2

REPORT INFORMATION
  Report Type: Spontaneous
  Country: US (occurrence: None)
  Receive Date: 20140512
  Receipt Date: 20140516
  Transmission Date: 20141212
  Serious: Yes (Other)
  Sender: FDA-Public Use
  Company Number: 20140243

PATIENT
  Age: 9 Year
  Sex: Female

DRUGS (1)
  1. DEXAMETHASONE [Suspect]
     Indication: PRODUCT USED FOR UNKNOWN INDICATION
     Dosage: DOSE UNKNOWN UNKNOWN, UNK/UNK

REACTIONS (3)
  - Hypertrophy [None]
  - Oedema [None]
  - Underdose [None]
